FAERS Safety Report 19200255 (Version 2)
Quarter: 2021Q2

REPORT INFORMATION
  Report Type: Report from Study
  Country: None (occurrence: US)
  Receive Date: 20210430
  Receipt Date: 20210506
  Transmission Date: 20210717
  Serious: Yes (Hospitalization, Other)
  Sender: FDA-Public Use
  Company Number: US-ABBVIE-21K-163-3883858-00

PATIENT
  Age: 89 Year
  Sex: Female
  Weight: 49.94 kg

DRUGS (1)
  1. SYNTHROID [Suspect]
     Active Substance: LEVOTHYROXINE SODIUM
     Indication: HYPOTHYROIDISM
     Route: 048

REACTIONS (7)
  - Troponin increased [Unknown]
  - Myocardial infarction [Recovered/Resolved]
  - Chest pain [Unknown]
  - Hypertension [Recovering/Resolving]
  - Fatigue [Unknown]
  - Chest pain [Recovering/Resolving]
  - Insomnia [Unknown]

NARRATIVE: CASE EVENT DATE: 202102
